FAERS Safety Report 7425182-9 (Version None)
Quarter: 2011Q2

REPORT INFORMATION
  Report Type: 
  Country: None (occurrence: None)
  Receive Date: 20110413
  Receipt Date: 20110404
  Transmission Date: 20111010
  Serious: Yes (Death, Other)
  Sender: FDA-Public Use
  Company Number: CLOF-1000616

PATIENT
  Age: 16 Month
  Sex: Male
  Weight: 13.1 kg

DRUGS (5)
  1. TACROLIMUS [Concomitant]
  2. MELPHALAN HYDROCHLORIDE [Suspect]
     Indication: ACUTE LYMPHOCYTIC LEUKAEMIA
     Dosage: 70 MG/M2, QD, INTRAVENOUS
     Route: 042
     Dates: start: 20090426, end: 20090427
  3. METHOTREXATE [Concomitant]
  4. THIOTEPA [Suspect]
     Indication: ACUTE LYMPHOCYTIC LEUKAEMIA
     Dosage: 10 MG/KG, QD, INTRAVENOUS
     Route: 042
     Dates: start: 20090425, end: 20090425
  5. CLOLAR [Suspect]
     Indication: ACUTE LYMPHOCYTIC LEUKAEMIA
     Dosage: 20 MG/M2, QDX5, INTRAVENOUS
     Route: 042
     Dates: start: 20090420, end: 20090424

REACTIONS (10)
  - GRAFT VERSUS HOST DISEASE [None]
  - DUODENAL ULCER [None]
  - VIRAL INFECTION [None]
  - CLOSTRIDIUM DIFFICILE COLITIS [None]
  - RESPIRATORY TRACT INFECTION VIRAL [None]
  - ACUTE RESPIRATORY DISTRESS SYNDROME [None]
  - ERYTHEMA MULTIFORME [None]
  - GASTROINTESTINAL HAEMORRHAGE [None]
  - EPISTAXIS [None]
  - INFLUENZA [None]
